APPROVED DRUG PRODUCT: CHLOROQUINE PHOSPHATE
Active Ingredient: CHLOROQUINE PHOSPHATE
Strength: 500MG
Dosage Form/Route: TABLET;ORAL
Application: A090249 | Product #001
Applicant: IPCA LABORATORIES LTD
Approved: Dec 3, 2009 | RLD: No | RS: No | Type: DISCN